FAERS Safety Report 4695675-6 (Version None)
Quarter: 2005Q2

REPORT INFORMATION
  Report Type: 
  Country: None (occurrence: None)
  Receive Date: 20050617
  Receipt Date: 20050617
  Transmission Date: 20051028
  Serious: Yes (Hospitalization)
  Sender: FDA-Public Use
  Company Number: None

PATIENT
  Age: 6 Year
  Sex: Female
  Weight: 18 kg

DRUGS (2)
  1. IOBENGUANE SULFATE I 131 [Suspect]
     Indication: NEUROBLASTOMA
     Dosage: 131 I-MIBG-394 MCI-IV;   131 I-MIBG-392 MCI-IV
     Route: 042
     Dates: start: 20050322
  2. IOBENGUANE SULFATE I 131 [Suspect]
     Indication: NEUROBLASTOMA
     Dosage: 131 I-MIBG-394 MCI-IV;   131 I-MIBG-392 MCI-IV
     Route: 042
     Dates: start: 20050405

REACTIONS (2)
  - BODY TEMPERATURE INCREASED [None]
  - STEM CELL TRANSPLANT [None]
